FAERS Safety Report 8231297 (Version 3)
Quarter: 2013Q1

REPORT INFORMATION
  Report Type: Spontaneous
  Country: US (occurrence: None)
  Receive Date: 20111027
  Receipt Date: 20121203
  Transmission Date: 20140127
  Serious: Yes (Other)
  Sender: FDA-Public Use
  Company Number: 2011SGN00241

PATIENT
  Age: 21 Year
  Sex: Female

DRUGS (4)
  1. ADCETRIS [Suspect]
     Indication: HODGKIN^S DISEASE
     Dosage: Q21D
     Route: 042
     Dates: start: 2011
  2. DEXAMETHASONE (DEXAMETHASONE SODIUM PHOSPHATE) [Concomitant]
  3. PALONOSETRON (PALONOSETRON) [Concomitant]
  4. DIPHENHYDRAMINE (DIPHENHYDRAMINE) [Concomitant]

REACTIONS (9)
  - Swelling face [None]
  - Pharyngeal oedema [None]
  - Dyspnoea [None]
  - Eye swelling [None]
  - Cough [None]
  - Pruritus [None]
  - Retching [None]
  - Infusion related reaction [None]
  - Feeling abnormal [None]
